FAERS Safety Report 4748766-5 (Version None)
Quarter: 2005Q3

REPORT INFORMATION
  Report Type: 
  Country: None (occurrence: None)
  Receive Date: 20050812
  Receipt Date: 20050616
  Transmission Date: 20060218
  Serious: Yes (Other)
  Sender: FDA-Public Use
  Company Number: 408100

PATIENT
  Age: 43 Year
  Sex: Female

DRUGS (3)
  1. PEGASYS [Suspect]
     Indication: HEPATITIS C
     Dosage: 1 PER WEEK
     Route: 065
     Dates: start: 20050309
  2. COPEGUS [Suspect]
     Indication: HEPATITIS C
     Dosage: 6 DOSE FORM DAILY ORAL
     Route: 048
     Dates: start: 20050309
  3. PSYCHOPHARMAKA (PSYCHOPHARMACEUTICALS NOS) [Concomitant]

REACTIONS (4)
  - COMPLETED SUICIDE [None]
  - DEPRESSION [None]
  - DRUG INEFFECTIVE [None]
  - HEPATITIS B [None]
